FAERS Safety Report 9868337 (Version 2)
Quarter: 2015Q4

REPORT INFORMATION
  Report Type: Spontaneous
  Country: US (occurrence: US)
  Receive Date: 20140204
  Receipt Date: 20151103
  Transmission Date: 20160305
  Serious: Yes (Death, Other)
  Sender: FDA-Public Use
  Company Number: US-JNJFOC-20140117290

PATIENT

DRUGS (4)
  1. ABCIXIMAB [Suspect]
     Active Substance: ABCIXIMAB
     Indication: ACUTE MYOCARDIAL INFARCTION
     Route: 042
  2. ASPIRIN. [Concomitant]
     Active Substance: ASPIRIN
     Indication: PRODUCT USED FOR UNKNOWN INDICATION
     Dosage: 324 MG CHEWED OR 500 MG INTRAVENOUSLY WAS GIVEN UPFRONT AND 75 TO 81 MG DAILY AFTER DISCHARGE.
  3. HEPARIN [Suspect]
     Active Substance: HEPARIN SODIUM
     Indication: ACUTE MYOCARDIAL INFARCTION
  4. CLOPIDOGREL [Concomitant]
     Active Substance: CLOPIDOGREL BISULFATE
     Indication: PRODUCT USED FOR UNKNOWN INDICATION
     Dosage: 300 TO 600 MG CLOPIDOGREL LOADING DOSE WAS FOLLOWED WITH AN ORAL 75 MG DAILY FOR AT LEAST 6 MONTHS.
     Route: 065

REACTIONS (3)
  - Cardiac death [Fatal]
  - Thrombocytopenia [Not Recovered/Not Resolved]
  - Haemorrhage [Not Recovered/Not Resolved]
